FAERS Safety Report 15608538 (Version 2)
Quarter: 2018Q4

REPORT INFORMATION
  Report Type: Spontaneous
  Country: US (occurrence: US)
  Receive Date: 20181112
  Receipt Date: 20181112
  Transmission Date: 20190205
  Serious: Yes (Other)
  Sender: FDA-Public Use
  Company Number: US-SA-2018SA306435

PATIENT
  Age: 56 Year
  Sex: Female

DRUGS (1)
  1. LEMTRADA [Suspect]
     Active Substance: ALEMTUZUMAB
     Dosage: UNK
     Route: 041
     Dates: start: 2007, end: 2014

REACTIONS (4)
  - Petechiae [Unknown]
  - Platelet count decreased [Recovering/Resolving]
  - Immune thrombocytopenic purpura [Unknown]
  - Contusion [Unknown]
